FAERS Safety Report 25665289 (Version 1)
Quarter: 2025Q3

REPORT INFORMATION
  Report Type: Spontaneous
  Country: US (occurrence: US)
  Receive Date: 20250811
  Receipt Date: 20250811
  Transmission Date: 20251020
  Serious: Yes (Life-Threatening, Hospitalization)
  Sender: MYLAN
  Company Number: US-MYLANLABS-2025M1066912

PATIENT
  Age: 80 Year
  Sex: Male

DRUGS (8)
  1. AMIODARONE [Suspect]
     Active Substance: AMIODARONE
     Indication: Ventricular tachycardia
     Dosage: 100 MILLIGRAM, QD
  2. AMIODARONE [Suspect]
     Active Substance: AMIODARONE
     Dosage: 100 MILLIGRAM, QD
     Route: 065
  3. AMIODARONE [Suspect]
     Active Substance: AMIODARONE
     Dosage: 100 MILLIGRAM, QD
     Route: 065
  4. AMIODARONE [Suspect]
     Active Substance: AMIODARONE
     Dosage: 100 MILLIGRAM, QD
  5. ATROPINE [Concomitant]
     Active Substance: ATROPINE
     Indication: Bradycardia
  6. ATROPINE [Concomitant]
     Active Substance: ATROPINE
     Route: 065
  7. ATROPINE [Concomitant]
     Active Substance: ATROPINE
     Route: 065
  8. ATROPINE [Concomitant]
     Active Substance: ATROPINE

REACTIONS (6)
  - Decompensated hypothyroidism [Recovering/Resolving]
  - Hypothyroidism [Recovering/Resolving]
  - Cardiogenic shock [Recovering/Resolving]
  - Septic shock [Recovering/Resolving]
  - Cardiomegaly [Recovering/Resolving]
  - Atrioventricular block first degree [Recovering/Resolving]
